FAERS Safety Report 14095367 (Version 1)
Quarter: 2017Q4

REPORT INFORMATION
  Report Type: Spontaneous
  Country: US (occurrence: US)
  Receive Date: 20171017
  Receipt Date: 20171017
  Transmission Date: 20180321
  Serious: No
  Sender: FDA-Public Use
  Company Number: US-LUPIN PHARMACEUTICALS INC.-2017-03683

PATIENT
  Age: 28 Year
  Sex: Female
  Weight: 61.22 kg

DRUGS (1)
  1. FALLBACK SOLO [Suspect]
     Active Substance: LEVONORGESTREL
     Indication: CONTRACEPTION
     Dosage: 1.5 MG, SINGLE
     Route: 048

REACTIONS (3)
  - Pyrexia [Not Recovered/Not Resolved]
  - Metrorrhagia [Not Recovered/Not Resolved]
  - Abdominal pain [Not Recovered/Not Resolved]

NARRATIVE: CASE EVENT DATE: 20170702
